FAERS Safety Report 5533877-7 (Version None)
Quarter: 2007Q4

REPORT INFORMATION
  Report Type: 
  Country: None (occurrence: None)
  Receive Date: 20071129
  Receipt Date: 20071114
  Transmission Date: 20080405
  Serious: Yes (Other)
  Sender: FDA-Public Use
  Company Number: POMP-11271

PATIENT
  Age: 10 Year
  Sex: Male

DRUGS (1)
  1. MYOZYME [Suspect]
     Indication: GLYCOGEN STORAGE DISEASE TYPE II

REACTIONS (4)
  - DYSPHAGIA [None]
  - ERYTHEMA [None]
  - INFUSION RELATED REACTION [None]
  - THROAT TIGHTNESS [None]
